FAERS Safety Report 6825589-4 (Version None)
Quarter: 2010Q3

REPORT INFORMATION
  Report Type: 
  Country: None (occurrence: None)
  Receive Date: 20100708
  Receipt Date: 20070515
  Transmission Date: 20110219
  Serious: No
  Sender: FDA-Public Use
  Company Number: US-PFIZER INC-2007002617

PATIENT
  Sex: Male
  Weight: 117.93 kg

DRUGS (6)
  1. CHANTIX [Suspect]
     Indication: SMOKING CESSATION THERAPY
     Dates: start: 20061230
  2. PAROXETINE HCL [Concomitant]
  3. ACIPHEX [Concomitant]
  4. LORAZEPAM [Concomitant]
  5. VICODIN [Concomitant]
     Indication: EXOSTOSIS
  6. LIPITOR [Concomitant]

REACTIONS (3)
  - BACK PAIN [None]
  - MUSCLE SPASMS [None]
  - MYALGIA [None]
